FAERS Safety Report 21679260 (Version 1)
Quarter: 2022Q4

REPORT INFORMATION
  Report Type: Spontaneous
  Country: US (occurrence: US)
  Receive Date: 20221205
  Receipt Date: 20221205
  Transmission Date: 20230112
  Serious: No
  Sender: FDA-Public Use
  Company Number: US-STRIDES ARCOLAB LIMITED-2022SP000976

PATIENT
  Sex: Female

DRUGS (2)
  1. PROPAFENONE [Suspect]
     Active Substance: PROPAFENONE
     Indication: Arrhythmia
     Dosage: UNK, TABLETS
     Route: 065
     Dates: start: 202111
  2. PROPAFENONE [Suspect]
     Active Substance: PROPAFENONE
     Indication: Supraventricular tachycardia

REACTIONS (1)
  - Hypoaesthesia [Unknown]
